FAERS Safety Report 12176900 (Version 3)
Quarter: 2025Q3

REPORT INFORMATION
  Report Type: Spontaneous
  Country: US (occurrence: US)
  Receive Date: 20160314
  Receipt Date: 20250812
  Transmission Date: 20251021
  Serious: Yes (Other)
  Sender: MERCK SHARP & DOHME LLC
  Company Number: US-ASTELLAS-2016US004814

PATIENT
  Sex: Male

DRUGS (9)
  1. CANCIDAS [Suspect]
     Active Substance: CASPOFUNGIN ACETATE
  2. HYDROCORTONE [Suspect]
     Active Substance: HYDROCORTISONE
  3. CRESEMBA [Suspect]
     Active Substance: ISAVUCONAZONIUM SULFATE
     Route: 042
  4. AMPHOTERICIN B [Suspect]
     Active Substance: AMPHOTERICIN B
  5. PANTOPRAZOLE [Suspect]
     Active Substance: PANTOPRAZOLE
  6. ACYCLOVIR [Suspect]
     Active Substance: ACYCLOVIR
  7. VANCOMYCIN [Suspect]
     Active Substance: VANCOMYCIN
  8. MEROPENEM [Suspect]
     Active Substance: MEROPENEM
  9. ISAVUCONAZOLE [Suspect]
     Active Substance: ISAVUCONAZOLE

REACTIONS (2)
  - Neutropenia [Unknown]
  - Drug level decreased [Not Recovered/Not Resolved]
